FAERS Safety Report 16465284 (Version 1)
Quarter: 2019Q2

REPORT INFORMATION
  Report Type: Spontaneous
  Country: US (occurrence: US)
  Receive Date: 20190621
  Receipt Date: 20190621
  Transmission Date: 20190711
  Serious: Yes (Life-Threatening, Hospitalization, Other)
  Sender: FDA-Public Use
  Company Number: US-BIOGEN-2019BI00751740

PATIENT
  Sex: Female

DRUGS (3)
  1. ROCEPHIN [Suspect]
     Active Substance: CEFTRIAXONE SODIUM
     Indication: PRODUCT USED FOR UNKNOWN INDICATION
     Route: 065
  2. COPAXONE [Concomitant]
     Active Substance: GLATIRAMER ACETATE
     Indication: PRODUCT USED FOR UNKNOWN INDICATION
     Route: 065
  3. AVONEX [Suspect]
     Active Substance: INTERFERON BETA-1A
     Indication: MULTIPLE SCLEROSIS
     Route: 030
     Dates: start: 20030327, end: 20190401

REACTIONS (7)
  - Hypersomnia [Unknown]
  - Multiple sclerosis relapse [Unknown]
  - Stress [Unknown]
  - Asthenia [Unknown]
  - Cystitis [Unknown]
  - Haemolytic anaemia [Not Recovered/Not Resolved]
  - Splenomegaly [Unknown]
